FAERS Safety Report 5198379-9 (Version None)
Quarter: 2006Q4

REPORT INFORMATION
  Report Type: 
  Country: None (occurrence: None)
  Receive Date: 20061229
  Receipt Date: 20061218
  Transmission Date: 20070319
  Serious: Yes (Hospitalization)
  Sender: FDA-Public Use
  Company Number: 2006BI018452

PATIENT
  Age: 47 Year
  Sex: Female
  Weight: 48.5349 kg

DRUGS (2)
  1. AVONEX [Suspect]
     Indication: MULTIPLE SCLEROSIS
     Dosage: 30 UG QW; IM
     Route: 030
     Dates: start: 19961023, end: 20030101
  2. AVONEX [Suspect]
     Indication: MULTIPLE SCLEROSIS
     Dosage: 30 UG, QW; IM
     Route: 030
     Dates: start: 20030101

REACTIONS (2)
  - ABDOMINAL PAIN UPPER [None]
  - BENIGN GASTRIC NEOPLASM [None]
